FAERS Safety Report 7923091 (Version 2)
Quarter: 2012Q4

REPORT INFORMATION
  Report Type: 
  Country: US (occurrence: US)
  Receive Date: 20110429
  Receipt Date: 20121018
  Transmission Date: 20130627
  Serious: Yes (Hospitalization)
  Sender: FDA-Public Use
  Company Number: US-ASTRAZENECA-2010SE21695

PATIENT
  Age: 89 Year
  Sex: Female

DRUGS (4)
  1. NEXIUM [Suspect]
     Route: 048
  2. CRESTOR [Suspect]
     Dosage: 3 DAYS PER WEEK
     Route: 048
  3. ADVAIR [Concomitant]
  4. COMBIVENT [Concomitant]

REACTIONS (10)
  - Eye disorder [Unknown]
  - Arthritis [Unknown]
  - Carpal tunnel syndrome [Unknown]
  - Tendonitis [Unknown]
  - Gastrooesophageal reflux disease [Unknown]
  - Drug dose omission [Unknown]
  - Fall [Unknown]
  - Upper limb fracture [Unknown]
  - Upper limb fracture [Unknown]
  - Oesophageal disorder [Unknown]
